FAERS Safety Report 8162888-0 (Version None)
Quarter: 2012Q1

REPORT INFORMATION
  Report Type: 
  Country: None (occurrence: None)
  Receive Date: 20120224
  Receipt Date: 20120215
  Transmission Date: 20120608
  Serious: Yes (Life-Threatening, Hospitalization)
  Sender: FDA-Public Use
  Company Number: RU-JNJFOC-20100700870

PATIENT
  Sex: Female
  Weight: 93.1 kg

DRUGS (12)
  1. PLACEBO [Suspect]
     Indication: RHEUMATOID ARTHRITIS
     Route: 058
     Dates: start: 20070801
  2. FOLIC ACID [Concomitant]
     Route: 048
     Dates: start: 20060831
  3. LEVOTHYROXINE SODIUM [Concomitant]
     Route: 048
     Dates: start: 20060101
  4. ACETYLSALICYLIC ACID SRT [Concomitant]
     Route: 048
     Dates: start: 20081221
  5. SIMPONI [Suspect]
     Indication: RHEUMATOID ARTHRITIS
     Route: 058
     Dates: start: 20080701
  6. METHOTREXATE [Concomitant]
     Route: 048
     Dates: start: 20080723
  7. PLACEBO [Suspect]
     Route: 058
     Dates: start: 20060829
  8. METHOTREXATE [Suspect]
     Route: 048
     Dates: start: 20080704
  9. VINPOCETINE [Concomitant]
     Route: 048
     Dates: start: 20081221
  10. SIMPONI [Suspect]
     Route: 058
     Dates: start: 20070903
  11. METHOTREXATE [Suspect]
     Indication: RHEUMATOID ARTHRITIS
     Route: 048
     Dates: start: 20060830
  12. IBUPROFEN [Concomitant]
     Route: 048
     Dates: start: 20060401

REACTIONS (1)
  - METASTATIC UTERINE CANCER [None]
